FAERS Safety Report 7426915-8 (Version None)
Quarter: 2011Q2

REPORT INFORMATION
  Report Type: 
  Country: None (occurrence: None)
  Receive Date: 20110420
  Receipt Date: 20110324
  Transmission Date: 20111010
  Serious: No
  Sender: FDA-Public Use
  Company Number: US-B.I. PHARMACEUTICALS,INC./RIDGEFIELD-2011-BP-09168BP

PATIENT
  Sex: Female

DRUGS (14)
  1. ALLOPURINOL [Concomitant]
     Indication: GOUT
  2. OMEPRAZOLE [Concomitant]
  3. FUROSEMIDE [Concomitant]
  4. ISOSORBIDE DINITRATE [Concomitant]
  5. CARVEDILOL [Concomitant]
     Indication: CARDIOMEGALY
  6. METFORMIN [Concomitant]
     Indication: CARDIOMEGALY
  7. ROPINIROLE [Concomitant]
     Indication: MUSCLE SPASMS
  8. VITAMIN B COMPLEX CAP [Concomitant]
  9. KLOR-CON [Concomitant]
  10. METFORMIN [Concomitant]
     Indication: HYPERTENSION
  11. PRADAXA [Suspect]
     Indication: CEREBROVASCULAR ACCIDENT PROPHYLAXIS
     Dosage: 300 MG
     Route: 048
     Dates: start: 20110323
  12. SIMVASTATIN [Concomitant]
     Indication: BLOOD CHOLESTEROL INCREASED
  13. CARVEDILOL [Concomitant]
     Indication: HYPERTENSION
  14. CALCIUM [Concomitant]

REACTIONS (2)
  - DYSPEPSIA [None]
  - THROAT IRRITATION [None]
